FAERS Safety Report 17771489 (Version 1)
Quarter: 2020Q2

REPORT INFORMATION
  Report Type: Spontaneous
  Country: US (occurrence: US)
  Receive Date: 20200512
  Receipt Date: 20200512
  Transmission Date: 20200714
  Serious: No
  Sender: FDA-Public Use
  Company Number: US-GILEAD-2020-0466276

PATIENT
  Sex: Male

DRUGS (1)
  1. AZTREONAM LYSINE [Suspect]
     Active Substance: AZTREONAM LYSINE
     Indication: PSEUDOMONAS INFECTION
     Dosage: UNK UNK, 3 TIMES DAILY EVERY OTHER MONTH. (FOLLOW MIXING IN )
     Route: 065
     Dates: start: 202005

REACTIONS (1)
  - Off label use [Not Recovered/Not Resolved]
